FAERS Safety Report 9846895 (Version 1)
Quarter: 2014Q1

REPORT INFORMATION
  Report Type: Spontaneous
  Country: DE (occurrence: DE)
  Receive Date: 20140127
  Receipt Date: 20140127
  Transmission Date: 20141002
  Serious: Yes (Other)
  Sender: FDA-Public Use
  Company Number: DE-PFIZER INC-2014022453

PATIENT
  Age: 63 Year
  Sex: Male

DRUGS (5)
  1. LYRICA [Suspect]
     Indication: PAIN
     Dosage: 2X75 MG
     Dates: start: 201306
  2. LYRICA [Suspect]
     Dosage: 2X150 MG
  3. VALORON [Concomitant]
     Indication: PAIN
  4. IBUPROFEN [Concomitant]
     Indication: PAIN
  5. VOLTAREN RESINAT [Concomitant]

REACTIONS (3)
  - Diplopia [Unknown]
  - Visual impairment [Unknown]
  - Dizziness [Unknown]
